FAERS Safety Report 9812842 (Version 1)
Quarter: 2014Q1

REPORT INFORMATION
  Report Type: Spontaneous
  Country: US (occurrence: None)
  Receive Date: 20140109
  Receipt Date: 20140109
  Transmission Date: 20141002
  Serious: Yes (Other)
  Sender: FDA-Public Use
  Company Number: None

PATIENT
  Age: 65 Year
  Sex: Female
  Weight: 54.43 kg

DRUGS (2)
  1. LINZESS [Suspect]
     Indication: IRRITABLE BOWEL SYNDROME
     Dosage: 1 DAILY  ONCE DAILY  TAKEN BY MOUTH
     Route: 048
     Dates: start: 20130628, end: 20130704
  2. LINZESS [Suspect]
     Indication: CONSTIPATION
     Dosage: 1 DAILY  ONCE DAILY  TAKEN BY MOUTH
     Route: 048
     Dates: start: 20130628, end: 20130704

REACTIONS (1)
  - Urticaria [None]
